FAERS Safety Report 24206078 (Version 1)
Quarter: 2024Q3

REPORT INFORMATION
  Report Type: Spontaneous
  Country: US (occurrence: US)
  Receive Date: 20240813
  Receipt Date: 20240813
  Transmission Date: 20241017
  Serious: Yes (Death, Other)
  Sender: AMGEN
  Company Number: US-AMGEN-USASP2024156829

PATIENT
  Age: 75 Year
  Sex: Male

DRUGS (4)
  1. FILGRASTIM [Suspect]
     Active Substance: FILGRASTIM
     Indication: Aplastic anaemia
     Dosage: UNK, 6 DOSES OF FILGRASTIM
     Route: 065
     Dates: start: 2024
  2. FILGRASTIM [Suspect]
     Active Substance: FILGRASTIM
     Indication: Off label use
  3. ABIRATERONE [Concomitant]
     Active Substance: ABIRATERONE
     Indication: Prostate cancer metastatic
     Dosage: UNK
     Dates: start: 2020
  4. LUPRON [Concomitant]
     Active Substance: LEUPROLIDE ACETATE
     Indication: Prostate cancer metastatic
     Dosage: UNK
     Dates: start: 2020

REACTIONS (3)
  - Fall [Fatal]
  - Traumatic intracranial haemorrhage [Fatal]
  - Off label use [Unknown]

NARRATIVE: CASE EVENT DATE: 20240101
